FAERS Safety Report 8453751-6 (Version None)
Quarter: 2012Q2

REPORT INFORMATION
  Report Type: 
  Country: None (occurrence: None)
  Receive Date: 20120620
  Receipt Date: 20120608
  Transmission Date: 20120825
  Serious: No
  Sender: FDA-Public Use
  Company Number: US-ASTRAZENECA-2012SE38824

PATIENT
  Age: 31 Year
  Sex: Male

DRUGS (2)
  1. SEROQUEL XR [Suspect]
     Route: 048
  2. SEROQUEL XR [Suspect]
     Indication: BIPOLAR II DISORDER
     Route: 048

REACTIONS (8)
  - INSOMNIA [None]
  - ADVERSE EVENT [None]
  - MENTAL IMPAIRMENT [None]
  - ABNORMAL SLEEP-RELATED EVENT [None]
  - IMPAIRED WORK ABILITY [None]
  - DRUG DOSE OMISSION [None]
  - MANIA [None]
  - DRUG TOLERANCE INCREASED [None]
